FAERS Safety Report 15121684 (Version 1)
Quarter: 2018Q3

REPORT INFORMATION
  Report Type: Spontaneous
  Country: BR (occurrence: BR)
  Receive Date: 20180709
  Receipt Date: 20180709
  Transmission Date: 20181010
  Serious: Yes (Other)
  Sender: FDA-Public Use
  Company Number: BR-BAXTER-2018BAX017052

PATIENT
  Age: 41 Year
  Sex: Female
  Weight: 100.2 kg

DRUGS (9)
  1. DEXAMETHASONE. [Suspect]
     Active Substance: DEXAMETHASONE
     Dosage: 6 CAP
     Route: 048
     Dates: start: 20180605, end: 20180607
  2. DOXORUBICIN [Suspect]
     Active Substance: DOXORUBICIN
     Indication: BREAST CANCER
     Dosage: FIRST CYCLE OF CD PROTOCOL
     Route: 042
  3. NAUSEDRON [Suspect]
     Active Substance: ONDANSETRON HYDROCHLORIDE
     Dosage: 4 CAP
     Route: 048
     Dates: start: 20180605, end: 20180606
  4. GENUXAL [Suspect]
     Active Substance: CYCLOPHOSPHAMIDE
     Indication: BREAST CANCER
     Dosage: FIRST CYCLE OF CD
     Route: 042
  5. DEXAMETHASONE. [Suspect]
     Active Substance: DEXAMETHASONE
     Indication: PRODUCT USED FOR UNKNOWN INDICATION
     Route: 042
     Dates: start: 20180605, end: 20180605
  6. DOXORUBICIN [Suspect]
     Active Substance: DOXORUBICIN
     Dosage: SECOND CYCLE OF CD PROTOCOL
     Route: 042
     Dates: start: 20180605, end: 20180605
  7. GENUXAL [Suspect]
     Active Substance: CYCLOPHOSPHAMIDE
     Dosage: SECOND CYCLE OF CD
     Route: 042
     Dates: start: 20180605, end: 20180605
  8. SODIUM CHLORIDE. [Suspect]
     Active Substance: SODIUM CHLORIDE
     Indication: MEDICATION DILUTION
     Route: 042
     Dates: start: 20180605, end: 20180605
  9. NAUSEDRON [Suspect]
     Active Substance: ONDANSETRON HYDROCHLORIDE
     Indication: PRODUCT USED FOR UNKNOWN INDICATION
     Route: 042
     Dates: start: 20180605, end: 20180605

REACTIONS (2)
  - Lacrimation increased [Recovered/Resolved]
  - Nasal pruritus [Recovered/Resolved]

NARRATIVE: CASE EVENT DATE: 20180605
